FAERS Safety Report 14372637 (Version 5)
Quarter: 2019Q4

REPORT INFORMATION
  Report Type: Report from Study
  Country: DE (occurrence: DE)
  Receive Date: 20180110
  Receipt Date: 20191014
  Transmission Date: 20200122
  Serious: Yes (Hospitalization)
  Sender: FDA-Public Use
  Company Number: DE-AMGEN-DEUCT2017146524

PATIENT
  Age: 17 Month
  Sex: Female
  Weight: 9.1 kg

DRUGS (13)
  1. HYDROCORTISON [Concomitant]
     Active Substance: HYDROCORTISONE
     Dosage: 1-10 MILLIGRAM
     Route: 048
     Dates: start: 20170915, end: 20170925
  2. NOVALGIN [Concomitant]
     Dosage: 70 MILLIGRAM
     Route: 042
     Dates: start: 20170916, end: 20170916
  3. PENICILLIN [Concomitant]
     Active Substance: PENICILLIN
     Dosage: 200000 UNK
     Route: 048
     Dates: start: 20170912, end: 20171001
  4. CANDIO HERMAL [Concomitant]
     Dosage: 0.5 MILLILITER
     Route: 048
     Dates: start: 20170913, end: 20171203
  5. DEXAMETHASONE. [Concomitant]
     Active Substance: DEXAMETHASONE
     Dosage: 0.5 TO 4 MILLIGRAM
     Dates: start: 20170912, end: 20170914
  6. ALLOPURINOL. [Concomitant]
     Active Substance: ALLOPURINOL
     Dosage: 50 MILLIGRAM
     Route: 048
     Dates: start: 20170912, end: 20170920
  7. FORTECORTIN [Concomitant]
     Active Substance: DEXAMETHASONE
     Dosage: 0.5 MILLIGRAM
     Route: 048
     Dates: start: 20170912, end: 20170914
  8. ACICLOVIR [Concomitant]
     Active Substance: ACYCLOVIR
     Dosage: 50 MILLIGRAM
     Route: 048
     Dates: start: 20170912, end: 20171005
  9. BLINATUMOMAB [Suspect]
     Active Substance: BLINATUMOMAB
     Indication: ACUTE LYMPHOCYTIC LEUKAEMIA
     Dosage: 15 MICROGRAM/SQ. METER, QD
     Route: 042
     Dates: start: 20170914, end: 20170921
  10. COTRIM [Concomitant]
     Active Substance: SULFAMETHOXAZOLE\TRIMETHOPRIM
     Dosage: 20 MILLIGRAM
     Route: 048
     Dates: start: 20170915, end: 20171204
  11. VORICONAZOL [Concomitant]
     Active Substance: VORICONAZOLE
     Dosage: 30 MILLIGRAM
     Route: 042
     Dates: start: 20170914, end: 20170919
  12. SAB SIMPLEX [Concomitant]
     Dosage: 1.5 MILLILITER
     Route: 048
     Dates: start: 20170915, end: 20170916
  13. RANITIC [Concomitant]
     Active Substance: RANITIDINE HYDROCHLORIDE
     Dosage: 10 MILLIGRAM
     Route: 048
     Dates: start: 20170912, end: 20170927

REACTIONS (1)
  - Acute myeloid leukaemia [Recovered/Resolved]

NARRATIVE: CASE EVENT DATE: 20170925
